FAERS Safety Report 7779275-7 (Version None)
Quarter: 2011Q3

REPORT INFORMATION
  Report Type: 
  Country: None (occurrence: None)
  Receive Date: 20110926
  Receipt Date: 20110916
  Transmission Date: 20111222
  Serious: Yes (Hospitalization)
  Sender: FDA-Public Use
  Company Number: SE-ASTRAZENECA-2011SE55840

PATIENT
  Age: 43 Year
  Sex: Male

DRUGS (9)
  1. ATENOLOL [Concomitant]
  2. XENICAL [Concomitant]
     Dosage: 120 MG
  3. SEROQUEL [Suspect]
     Indication: SCHIZOPHRENIA
     Route: 048
  4. ZOPIKLON [Concomitant]
  5. PROPAVAN [Concomitant]
     Dosage: 25 MG
  6. THERALEN [Concomitant]
     Dosage: 40 MG/ML
     Route: 048
  7. SIMVASTATIN [Suspect]
     Indication: HYPERCHOLESTEROLAEMIA
     Route: 048
     Dates: start: 20090101, end: 20110705
  8. HALDOL [Concomitant]
     Dosage: 50 MG/ML
  9. METFORMIN HCL [Concomitant]

REACTIONS (1)
  - MYOSITIS [None]
